FAERS Safety Report 6411842-5 (Version None)
Quarter: 2009Q4

REPORT INFORMATION
  Report Type: 
  Country: None (occurrence: None)
  Receive Date: 20091023
  Receipt Date: 20091013
  Transmission Date: 20100525
  Serious: Yes (Death, Hospitalization)
  Sender: FDA-Public Use
  Company Number: US-JNJFOC-20090905461

PATIENT
  Sex: Female
  Weight: 68.95 kg

DRUGS (8)
  1. REMICADE [Suspect]
     Indication: PSORIATIC ARTHROPATHY
     Route: 042
     Dates: end: 20090501
  2. REMICADE [Suspect]
     Indication: PSORIASIS
     Route: 042
     Dates: end: 20090501
  3. METHOTREXATE [Concomitant]
  4. PROZAC [Concomitant]
  5. WARFARIN SODIUM [Concomitant]
  6. MS CONTIN [Concomitant]
  7. XANAX [Concomitant]
  8. COUMADIN [Concomitant]
     Indication: THROMBOSIS

REACTIONS (1)
  - DEATH [None]
